FAERS Safety Report 4339158-1 (Version None)
Quarter: 2004Q2

REPORT INFORMATION
  Report Type: 
  Country: None (occurrence: None)
  Receive Date: 20040415
  Receipt Date: 20040405
  Transmission Date: 20050107
  Serious: Yes (Other)
  Sender: FDA-Public Use
  Company Number: US-BRISTOL-MYERS SQUIBB COMPANY-12551354

PATIENT

DRUGS (4)
  1. CARBOPLATIN [Suspect]
     Indication: PROSTATE CANCER
     Dosage: AUC 5--DAY 2
  2. ETOPOSIDE [Suspect]
     Indication: PROSTATE CANCER
     Dosage: DAYS 1-7
     Route: 048
  3. PACLITAXEL [Suspect]
     Indication: PROSTATE CANCER
     Dosage: DAY 2
     Route: 042
  4. ESTRAMUSTINE [Suspect]
     Indication: PROSTATE CANCER
     Dosage: DAYS 1-7
     Route: 048

REACTIONS (5)
  - ANAEMIA [None]
  - DEEP VEIN THROMBOSIS [None]
  - DIARRHOEA [None]
  - NEUTROPENIA [None]
  - THROMBOCYTOPENIA [None]
